FAERS Safety Report 9298396 (Version 1)
Quarter: 2013Q2

REPORT INFORMATION
  Report Type: Spontaneous
  Country: US (occurrence: US)
  Receive Date: 20130520
  Receipt Date: 20130520
  Transmission Date: 20140414
  Serious: Yes (Hospitalization)
  Sender: FDA-Public Use
  Company Number: US-PFIZER INC-2013153232

PATIENT
  Sex: Female

DRUGS (2)
  1. TIKOSYN [Suspect]
  2. CELEBREX [Suspect]

REACTIONS (2)
  - Cardiac disorder [Unknown]
  - Dyspnoea [Unknown]
